FAERS Safety Report 14002456 (Version 2)
Quarter: 2017Q4

REPORT INFORMATION
  Report Type: Spontaneous
  Country: US (occurrence: US)
  Receive Date: 20170922
  Receipt Date: 20171121
  Transmission Date: 20180321
  Serious: No
  Sender: FDA-Public Use
  Company Number: US-JNJFOC-20170819997

PATIENT
  Age: 85 Year
  Sex: Female

DRUGS (5)
  1. XARELTO [Suspect]
     Active Substance: RIVAROXABAN
     Indication: HEART RATE INCREASED
     Route: 048
     Dates: start: 20170809
  2. SERTRALINE [Concomitant]
     Active Substance: SERTRALINE HYDROCHLORIDE
     Route: 065
  3. ATENOLOL. [Concomitant]
     Active Substance: ATENOLOL
     Route: 065
  4. AMLODIPINE [Concomitant]
     Active Substance: AMLODIPINE BESYLATE
     Route: 065
  5. XARELTO [Suspect]
     Active Substance: RIVAROXABAN
     Indication: HEART RATE IRREGULAR
     Route: 048
     Dates: start: 20170809

REACTIONS (6)
  - Upper limb fracture [Unknown]
  - Product use in unapproved indication [Unknown]
  - Wrong technique in product usage process [Unknown]
  - Product packaging quantity issue [Unknown]
  - Off label use [Unknown]
  - Headache [Unknown]

NARRATIVE: CASE EVENT DATE: 2017
